FAERS Safety Report 22389934 (Version 2)
Quarter: 2023Q2

REPORT INFORMATION
  Report Type: Spontaneous
  Country: FR (occurrence: FR)
  Receive Date: 20230531
  Receipt Date: 20230601
  Transmission Date: 20230722
  Serious: Yes (Death, Other)
  Sender: FDA-Public Use
  Company Number: FR-PFIZER INC-PV202300094618

PATIENT
  Age: 33 Year
  Sex: Female

DRUGS (1)
  1. ETHINYL ESTRADIOL\NORGESTREL [Suspect]
     Active Substance: ETHINYL ESTRADIOL\NORGESTREL
     Indication: Contraception
     Dosage: (0.5 MG, 0.05 MG)
     Route: 048

REACTIONS (2)
  - Pulmonary embolism [Fatal]
  - Portal vein thrombosis [Fatal]
